FAERS Safety Report 22635457 (Version 1)
Quarter: 2023Q2

REPORT INFORMATION
  Report Type: Spontaneous
  Country: US (occurrence: US)
  Receive Date: 20230623
  Receipt Date: 20230623
  Transmission Date: 20230721
  Serious: Yes (Other)
  Sender: FDA-Public Use
  Company Number: US-AUROBINDO-AUR-APL-2023-042742

PATIENT
  Age: 27 Year
  Sex: Female

DRUGS (6)
  1. METHYLPREDNISOLONE [Suspect]
     Active Substance: METHYLPREDNISOLONE
     Indication: Still^s disease
     Dosage: UNK
     Route: 065
  2. RIFAMPIN [Concomitant]
     Active Substance: RIFAMPIN
     Indication: Still^s disease
     Dosage: UNK
     Route: 065
  3. ISONIAZID [Concomitant]
     Active Substance: ISONIAZID
     Indication: Still^s disease
     Dosage: UNK
     Route: 065
  4. PYRAZINAMIDE [Concomitant]
     Active Substance: PYRAZINAMIDE
     Indication: Still^s disease
     Dosage: UNK
     Route: 065
  5. ETHAMBUTOL [Concomitant]
     Active Substance: ETHAMBUTOL HYDROCHLORIDE
     Indication: Still^s disease
     Dosage: UNK
     Route: 065
  6. CANAKINUMAB [Concomitant]
     Active Substance: CANAKINUMAB
     Indication: Still^s disease
     Dosage: UNK
     Route: 065

REACTIONS (1)
  - Drug ineffective [Unknown]
